FAERS Safety Report 4784907-1 (Version None)
Quarter: 2005Q3

REPORT INFORMATION
  Report Type: 
  Country: None (occurrence: None)
  Receive Date: 20050930
  Receipt Date: 20050926
  Transmission Date: 20060218
  Serious: Yes (Hospitalization)
  Sender: FDA-Public Use
  Company Number: 2005UW14366

PATIENT
  Sex: Female

DRUGS (4)
  1. ARIMIDEX [Suspect]
     Indication: BREAST CANCER
     Route: 048
     Dates: start: 20050515
  2. IMURAN [Concomitant]
  3. PREDNISONE [Concomitant]
  4. PREVACID [Concomitant]

REACTIONS (1)
  - MUSCLE SPASMS [None]
